FAERS Safety Report 7206034-6 (Version None)
Quarter: 2010Q4

REPORT INFORMATION
  Report Type: 
  Country: None (occurrence: None)
  Receive Date: 20101220
  Receipt Date: 20101203
  Transmission Date: 20110411
  Serious: Yes (Other)
  Sender: FDA-Public Use
  Company Number: AUR-APL-2010-03053

PATIENT
  Age: 61 Year
  Sex: Female

DRUGS (8)
  1. SIMVASTATIN [Suspect]
     Indication: HYPERCHOLESTEROLAEMIA
     Dosage: ^1DD^ 20MG - DAILY -
  2. BUDESONIDE [Concomitant]
  3. PREDNISOLONE [Concomitant]
  4. IPRATROPIUM BROMIDE [Concomitant]
  5. DILTIAZEM [Concomitant]
  6. HYDROCHLOROTHIAZIDE [Concomitant]
  7. SODIUM CHLORIDE/UREA CREAM [Concomitant]
  8. LISINOPRIL [Concomitant]

REACTIONS (2)
  - OEDEMA PERIPHERAL [None]
  - TENDONITIS [None]
